FAERS Safety Report 18744885 (Version 1)
Quarter: 2021Q1

REPORT INFORMATION
  Report Type: Spontaneous
  Country: RU (occurrence: RU)
  Receive Date: 20210115
  Receipt Date: 20210115
  Transmission Date: 20210419
  Serious: Yes (Death)
  Sender: FDA-Public Use
  Company Number: RU-NEBO-PC006385

PATIENT
  Age: 60 Year
  Sex: Male
  Weight: 83 kg

DRUGS (10)
  1. DROTAVERINE [Concomitant]
     Active Substance: DROTAVERINE
     Dates: start: 20201225
  2. SODIUM CHLORIDE. [Concomitant]
     Active Substance: SODIUM CHLORIDE
     Dates: start: 20201225
  3. PROCAINE [Concomitant]
     Active Substance: PROCAINE
     Dates: start: 20201225
  4. ASCORBIC ACID. [Concomitant]
     Active Substance: ASCORBIC ACID
     Dates: start: 20201225
  5. POTASSIUM?MAGNESIUM?L?ASPARAGINATE [Concomitant]
     Dates: start: 20201225
  6. KETOROLAC [Concomitant]
     Active Substance: KETOROLAC TROMETHAMINE
     Dates: start: 20201225
  7. METRONIDAZOLE. [Concomitant]
     Active Substance: METRONIDAZOLE
     Dates: start: 20201225
  8. MONOFER [Suspect]
     Active Substance: IRON ISOMALTOSIDE 1000
     Indication: IRON DEFICIENCY ANAEMIA
     Route: 042
     Dates: start: 20201226, end: 20201226
  9. DEXAMETHASONE [DEXAMETHASONE ACETATE] [Concomitant]
     Dates: start: 20201225
  10. DIPHENHYDRAMINE. [Concomitant]
     Active Substance: DIPHENHYDRAMINE
     Dates: start: 20201225

REACTIONS (6)
  - Dyspnoea [Fatal]
  - Mydriasis [Fatal]
  - Respiratory arrest [Fatal]
  - Blood pressure immeasurable [Fatal]
  - Cyanosis [Fatal]
  - Pulse absent [Fatal]

NARRATIVE: CASE EVENT DATE: 20201226
